FAERS Safety Report 9157484 (Version 1)
Quarter: 2013Q1

REPORT INFORMATION
  Report Type: Spontaneous
  Country: US (occurrence: US)
  Receive Date: 20130312
  Receipt Date: 20130312
  Transmission Date: 20140127
  Serious: No
  Sender: FDA-Public Use
  Company Number: US-BAYER-2013-030123

PATIENT
  Age: 60 Year
  Sex: Female
  Weight: 49.89 kg

DRUGS (2)
  1. ALEVE CAPLET/TABLET,MIDOL EXTENDED RELIEF CAPLET [Suspect]
     Indication: HEADACHE
     Dosage: 1 DF, PRN
     Route: 048
     Dates: start: 2010
  2. CITRACAL MAXIMUM [Concomitant]
     Dosage: 2 DF, BID
     Dates: start: 2009

REACTIONS (1)
  - Feeling jittery [Recovered/Resolved]
